FAERS Safety Report 15394344 (Version 1)
Quarter: 2018Q3

REPORT INFORMATION
  Report Type: Spontaneous
  Country: JP (occurrence: JP)
  Receive Date: 20180918
  Receipt Date: 20180918
  Transmission Date: 20181010
  Serious: No
  Sender: FDA-Public Use
  Company Number: JP-LUPIN PHARMACEUTICALS INC.-2018-04980

PATIENT
  Age: 64 Year
  Sex: Female

DRUGS (6)
  1. PAMILCON [Concomitant]
     Active Substance: GLYBURIDE
     Indication: DIABETES MELLITUS
     Dosage: 2 DF, QD
     Route: 048
     Dates: start: 20180320
  2. TERAMURO [Concomitant]
     Indication: BLOOD PRESSURE INCREASED
     Dosage: 1 DF, QD
     Route: 048
     Dates: start: 20150320
  3. REBAMIPIDE [Suspect]
     Active Substance: REBAMIPIDE
     Indication: DUODENAL ULCER
     Dosage: 3 DF, QD
     Route: 048
     Dates: start: 20180606, end: 20180703
  4. OMEPRAZOLE 20MG TABLET [Suspect]
     Active Substance: OMEPRAZOLE
     Indication: DUODENAL ULCER
     Dosage: 20 MG, QD
     Route: 048
     Dates: start: 20180606, end: 20180703
  5. EQUA [Concomitant]
     Active Substance: VILDAGLIPTIN
     Indication: DIABETES MELLITUS
     Dosage: 2 DF, QD
     Route: 048
     Dates: start: 20150320
  6. CANAGLU [Concomitant]
     Active Substance: CANAGLIFLOZIN
     Indication: DIABETES MELLITUS
     Dosage: 100 MG, QD
     Route: 048
     Dates: start: 20150320

REACTIONS (4)
  - Insomnia [Unknown]
  - Pruritus [Unknown]
  - Drug eruption [Unknown]
  - Rash [Unknown]

NARRATIVE: CASE EVENT DATE: 20180608
